FAERS Safety Report 6429246-8 (Version None)
Quarter: 2009Q4

REPORT INFORMATION
  Report Type: 
  Country: None (occurrence: None)
  Receive Date: 20091105
  Receipt Date: 20091027
  Transmission Date: 20100525
  Serious: Yes (Other)
  Sender: FDA-Public Use
  Company Number: PHHY2009DE45339

PATIENT
  Age: 90 Year
  Sex: Male

DRUGS (1)
  1. EXELON [Suspect]
     Indication: DEMENTIA ALZHEIMER'S TYPE
     Dosage: 4.6 MG/24 HRS
     Route: 062

REACTIONS (3)
  - AGITATION [None]
  - PSYCHOTIC DISORDER [None]
  - RESTLESSNESS [None]
